FAERS Safety Report 4745811-8 (Version None)
Quarter: 2005Q3

REPORT INFORMATION
  Report Type: 
  Country: None (occurrence: None)
  Receive Date: 20050815
  Receipt Date: 20050815
  Transmission Date: 20060218
  Serious: Yes (Life-Threatening, Other)
  Sender: FDA-Public Use
  Company Number: None

PATIENT
  Sex: Female
  Weight: 86.1834 kg

DRUGS (5)
  1. PREDNISONE [Suspect]
     Indication: EXOPHTHALMOS
     Dosage: 1-4 TABS   ONCE PER DAY   ORAL
     Route: 048
     Dates: start: 20050118, end: 20050509
  2. TRAMADOL HCL [Concomitant]
  3. ADVIL [Concomitant]
  4. NEXIUM [Concomitant]
  5. LEVAQUIN [Concomitant]

REACTIONS (9)
  - ALOPECIA [None]
  - ARTHRALGIA [None]
  - ASTHENIA [None]
  - BLOOD PRESSURE IMMEASURABLE [None]
  - DRUG WITHDRAWAL SYNDROME [None]
  - HYPERHIDROSIS [None]
  - MYALGIA [None]
  - NAUSEA [None]
  - SYNCOPE [None]
